FAERS Safety Report 21863511 (Version 1)
Quarter: 2023Q1

REPORT INFORMATION
  Report Type: Spontaneous
  Country: US (occurrence: US)
  Receive Date: 20230115
  Receipt Date: 20230115
  Transmission Date: 20230418
  Serious: No
  Sender: FDA-Public Use
  Company Number: US-SA-SAC20230113000220

PATIENT
  Age: 44 Year
  Sex: Female
  Weight: 48 kg

DRUGS (1)
  1. DUPIXENT [Suspect]
     Active Substance: DUPILUMAB
     Indication: Dermatitis atopic
     Dosage: 600 MG, 1X
     Route: 058

REACTIONS (4)
  - Blood pressure decreased [Unknown]
  - Vision blurred [Recovering/Resolving]
  - Condition aggravated [Unknown]
  - Dizziness [Unknown]

NARRATIVE: CASE EVENT DATE: 20221201
